FAERS Safety Report 15138654 (Version 1)
Quarter: 2018Q3

REPORT INFORMATION
  Report Type: Spontaneous
  Country: FR (occurrence: FR)
  Receive Date: 20180713
  Receipt Date: 20180713
  Transmission Date: 20181010
  Serious: Yes (Other)
  Sender: FDA-Public Use
  Company Number: FR-AUROBINDO-AUR-APL-2018-035409

PATIENT
  Age: 53 Year
  Sex: Male
  Weight: 65 kg

DRUGS (3)
  1. CARBOPLATIN. [Suspect]
     Active Substance: CARBOPLATIN
     Indication: SQUAMOUS CELL CARCINOMA OF HEAD AND NECK
     Dosage: UNK
     Route: 065
     Dates: start: 201701, end: 201708
  2. ERBITUX [Suspect]
     Active Substance: CETUXIMAB
     Indication: SQUAMOUS CELL CARCINOMA OF HEAD AND NECK
     Dosage: UNK
     Route: 065
     Dates: start: 201701, end: 201708
  3. 5?FU                               /00098801/ [Suspect]
     Active Substance: FLUOROURACIL
     Indication: SQUAMOUS CELL CARCINOMA OF HEAD AND NECK
     Dosage: UNK
     Route: 065
     Dates: start: 201701, end: 201708

REACTIONS (3)
  - Drug resistance [Unknown]
  - Squamous cell carcinoma of head and neck [None]
  - Malignant neoplasm progression [Unknown]

NARRATIVE: CASE EVENT DATE: 201708
